FAERS Safety Report 25211282 (Version 2)
Quarter: 2025Q4

REPORT INFORMATION
  Report Type: Report from Study
  Country: JP (occurrence: JP)
  Receive Date: 20250417
  Receipt Date: 20251107
  Transmission Date: 20260117
  Serious: Yes (Hospitalization)
  Sender: BAUSCH AND LOMB
  Company Number: JP-ferring-EVA202500439FERRINGPH

PATIENT
  Age: 92 Year
  Sex: Male
  Weight: 75 kg

DRUGS (2)
  1. BUDESONIDE [Suspect]
     Active Substance: BUDESONIDE
     Indication: Colitis ulcerative
     Dosage: 9 MG DAILY
     Route: 048
     Dates: start: 20241217, end: 20250217
  2. LIALDA [Concomitant]
     Active Substance: MESALAMINE
     Indication: Product used for unknown indication
     Dates: start: 20200715

REACTIONS (1)
  - Dysuria [Recovering/Resolving]

NARRATIVE: CASE EVENT DATE: 20250211
